FAERS Safety Report 4360708-3 (Version None)
Quarter: 2004Q2

REPORT INFORMATION
  Report Type: 
  Country: None (occurrence: None)
  Receive Date: 20040519
  Receipt Date: 20040519
  Transmission Date: 20050107
  Serious: Yes (Other)
  Sender: FDA-Public Use
  Company Number: None

PATIENT
  Age: 52 Year
  Sex: Male

DRUGS (1)
  1. ETHACRYNIC ACID [Suspect]
     Indication: DIURETIC THERAPY
     Dosage: 100 MG IV X 1
     Route: 042
     Dates: start: 20040113

REACTIONS (3)
  - DEAFNESS [None]
  - HYPERSENSITIVITY [None]
  - SENSATION OF PRESSURE IN EAR [None]
